FAERS Safety Report 4386091-5 (Version None)
Quarter: 2004Q2

REPORT INFORMATION
  Report Type: 
  Country: None (occurrence: None)
  Receive Date: 20040624
  Receipt Date: 20030429
  Transmission Date: 20050107
  Serious: Yes (Other)
  Sender: FDA-Public Use
  Company Number: LBID00203001202

PATIENT
  Sex: Male

DRUGS (2)
  1. LITHOBID [Suspect]
     Indication: DEPRESSION
     Dosage: 1200 MG DAILY PO
     Route: 048
     Dates: start: 20030401, end: 20030415
  2. PARNATE [Concomitant]

REACTIONS (3)
  - DEPRESSION [None]
  - DRUG INEFFECTIVE [None]
  - DRUG LEVEL DECREASED [None]
